FAERS Safety Report 5675894-2 (Version None)
Quarter: 2008Q1

REPORT INFORMATION
  Report Type: 
  Country: None (occurrence: None)
  Receive Date: 20080321
  Receipt Date: 20080317
  Transmission Date: 20080703
  Serious: Yes (Other)
  Sender: FDA-Public Use
  Company Number: A0715801A

PATIENT
  Sex: Male

DRUGS (3)
  1. ADVAIR DISKUS 100/50 [Suspect]
     Indication: DRUG USE FOR UNKNOWN INDICATION
     Route: 055
  2. XOPENEX [Concomitant]
  3. PREVACID [Concomitant]

REACTIONS (4)
  - BRONCHITIS [None]
  - BRONCHOPNEUMONIA [None]
  - DYSPNOEA [None]
  - ERYTHEMA [None]
